FAERS Safety Report 24294672 (Version 2)
Quarter: 2025Q1

REPORT INFORMATION
  Report Type: Report from Study
  Country: JP (occurrence: JP)
  Receive Date: 20240906
  Receipt Date: 20250304
  Transmission Date: 20250409
  Serious: Yes (Life-Threatening, Hospitalization, Other)
  Sender: ALEXION PHARMACEUTICALS
  Company Number: 2023A203252

PATIENT
  Age: 81 Year
  Weight: 78 kg

DRUGS (5)
  1. DURVALUMAB [Suspect]
     Active Substance: DURVALUMAB
     Indication: Hepatocellular carcinoma
  2. TREMELIMUMAB [Suspect]
     Active Substance: TREMELIMUMAB
     Indication: Hepatocellular carcinoma
  3. URSO [Concomitant]
     Active Substance: URSODIOL
     Route: 065
  4. ACETAMINOPHEN [Concomitant]
     Active Substance: ACETAMINOPHEN
     Route: 065
  5. ACETAMINOPHEN [Concomitant]
     Active Substance: ACETAMINOPHEN
     Route: 065

REACTIONS (6)
  - Enterocolitis [Recovered/Resolved]
  - Hyperkalaemia [Recovered/Resolved]
  - Hypercreatinaemia [Recovered/Resolved]
  - Duodenal ulcer [Recovered/Resolved]
  - Glucose tolerance impaired [Unknown]
  - Renal disorder [Unknown]
